FAERS Safety Report 8493062-6 (Version None)
Quarter: 2012Q2

REPORT INFORMATION
  Report Type: 
  Country: None (occurrence: None)
  Receive Date: 20120627
  Receipt Date: 20120427
  Transmission Date: 20120825
  Serious: Yes (Hospitalization)
  Sender: FDA-Public Use
  Company Number: 2012MA007632

PATIENT
  Age: 88 Year
  Sex: Female

DRUGS (8)
  1. RAMIPRIL [Concomitant]
  2. LASIX [Concomitant]
  3. LANSOPRAZOLE [Concomitant]
  4. LORAZEPAM [Suspect]
     Indication: COGNITIVE DISORDER
     Dosage: 2.5 MG;QD;PO
     Route: 048
     Dates: start: 20120325, end: 20120325
  5. ASPIRIN [Concomitant]
  6. CALCITRIOLO DOC [Concomitant]
  7. GENERICI [Concomitant]
  8. CITALOPRAM HYDROBROMIDE [Concomitant]

REACTIONS (3)
  - ASTHENIA [None]
  - EATING DISORDER [None]
  - COGNITIVE DISORDER [None]
